FAERS Safety Report 8586374-9 (Version None)
Quarter: 2012Q3

REPORT INFORMATION
  Report Type: 
  Country: None (occurrence: None)
  Receive Date: 20120810
  Receipt Date: 20120809
  Transmission Date: 20120928
  Serious: Yes (Hospitalization)
  Sender: FDA-Public Use
  Company Number: GB-ROCHE-1099623

PATIENT
  Sex: Female
  Weight: 145 kg

DRUGS (2)
  1. METHOTREXATE [Concomitant]
  2. ACTEMRA [Suspect]
     Indication: RHEUMATOID ARTHRITIS
     Dosage: ON 04/JUL/2011, LAST DOSE PRIOR TO SAE
     Dates: start: 20110331

REACTIONS (1)
  - RHEUMATOID ARTHRITIS [None]
